FAERS Safety Report 26122890 (Version 1)
Quarter: 2025Q4

REPORT INFORMATION
  Report Type: Spontaneous
  Country: CN (occurrence: CN)
  Receive Date: 20251204
  Receipt Date: 20251204
  Transmission Date: 20260117
  Serious: Yes (Other)
  Sender: MERCK SHARP & DOHME LLC
  Company Number: CN-009507513-2354042

PATIENT
  Age: 59 Year
  Sex: Female
  Weight: 53 kg

DRUGS (4)
  1. PEMBROLIZUMAB [Suspect]
     Active Substance: PEMBROLIZUMAB
     Indication: Metastases to liver
     Dosage: TIME INTERVAL: TOTAL: 200 MG, ONCE
     Route: 041
     Dates: start: 20251021, end: 20251021
  2. SODIUM CHLORIDE [Concomitant]
     Active Substance: SODIUM CHLORIDE
     Dosage: TIME INTERVAL: TOTAL: 500 ML, ONCE (0.9%)
     Route: 041
     Dates: start: 20251021, end: 20251021
  3. SODIUM CHLORIDE [Concomitant]
     Active Substance: SODIUM CHLORIDE
     Dosage: TIME INTERVAL: TOTAL: 100 ML, ONCE (0.9%)
     Route: 041
     Dates: start: 20251021, end: 20251021
  4. GEMCITABINE [Suspect]
     Active Substance: GEMCITABINE
     Indication: Metastases to liver
     Dosage: TIME INTERVAL: TOTAL: 1.3 G, ONCE
     Route: 041
     Dates: start: 20251021, end: 20251021

REACTIONS (2)
  - Platelet count decreased [Recovering/Resolving]
  - White blood cell count decreased [Recovering/Resolving]

NARRATIVE: CASE EVENT DATE: 20251102
